FAERS Safety Report 8115866 (Version 2)
Quarter: 2013Q1

REPORT INFORMATION
  Report Type: Spontaneous
  Country: JP (occurrence: JP)
  Receive Date: 20110831
  Receipt Date: 20130211
  Transmission Date: 20140127
  Serious: Yes (Hospitalization)
  Sender: FDA-Public Use
  Company Number: JP-ELI_LILLY_AND_COMPANY-JP201108006732

PATIENT
  Age: 75 Year
  Sex: Female

DRUGS (2)
  1. FORTEO [Suspect]
     Dosage: UNK
     Route: 058
     Dates: end: 2011
  2. FORTEO [Suspect]
     Dosage: UNK
     Route: 058
     Dates: start: 20110814

REACTIONS (2)
  - Lumbar vertebral fracture [Unknown]
  - Pain [Unknown]
